FAERS Safety Report 15042989 (Version 1)
Quarter: 2018Q2

REPORT INFORMATION
  Report Type: Spontaneous
  Country: FR (occurrence: FR)
  Receive Date: 20180621
  Receipt Date: 20180621
  Transmission Date: 20180711
  Serious: Yes (Hospitalization)
  Sender: FDA-Public Use
  Company Number: FR-MYLANLABS-2018M1041094

PATIENT
  Age: 46 Year
  Sex: Male

DRUGS (6)
  1. THALLIUM [Concomitant]
     Active Substance: THALLIUM
     Indication: RADIOISOTOPE SCAN
     Dosage: UNK
     Route: 042
  2. RAMIPRIL MYLAN [Suspect]
     Active Substance: RAMIPRIL
     Indication: MYOCARDIAL INFARCTION
     Dosage: 2.5 MG, QD
     Route: 048
     Dates: start: 20180220, end: 20180228
  3. VISIPAQUE [Suspect]
     Active Substance: IODIXANOL
     Indication: ARTERIOGRAM CORONARY
     Dosage: UNK
     Route: 042
  4. KARDEGIC [Concomitant]
     Active Substance: ASPIRIN DL-LYSINE
     Indication: MYOCARDIAL INFARCTION
     Dosage: UNK
     Route: 048
  5. TAHOR [Concomitant]
     Active Substance: ATORVASTATIN CALCIUM
     Indication: MYOCARDIAL INFARCTION
     Dosage: UNK
     Route: 048
  6. BRILIQUE [Concomitant]
     Active Substance: TICAGRELOR
     Indication: MYOCARDIAL INFARCTION
     Dosage: UNK
     Route: 048

REACTIONS (1)
  - Toxic skin eruption [Not Recovered/Not Resolved]

NARRATIVE: CASE EVENT DATE: 20180226
